FAERS Safety Report 6267097-8 (Version None)
Quarter: 2009Q3

REPORT INFORMATION
  Report Type: 
  Country: None (occurrence: None)
  Receive Date: 20090714
  Receipt Date: 20090707
  Transmission Date: 20100115
  Serious: Yes (Other)
  Sender: FDA-Public Use
  Company Number: GR-AVENTIS-200916752GDDC

PATIENT
  Age: 64 Year
  Sex: Female

DRUGS (3)
  1. ARAVA [Suspect]
     Dosage: DOSE: UNK
  2. CORTIZONE [Concomitant]
     Dosage: DOSE: UNK
  3. ANTI-LIPIDE [Concomitant]
     Dosage: DOSE: UNK

REACTIONS (3)
  - DEAFNESS UNILATERAL [None]
  - HEARING IMPAIRED [None]
  - VIIITH NERVE LESION [None]
